FAERS Safety Report 8239072-5 (Version None)
Quarter: 2012Q1

REPORT INFORMATION
  Report Type: 
  Country: None (occurrence: None)
  Receive Date: 20120327
  Receipt Date: 20120322
  Transmission Date: 20120608
  Serious: Yes (Other)
  Sender: FDA-Public Use
  Company Number: GR-ASTRAZENECA-2012SE19614

PATIENT
  Age: 56 Year
  Sex: Male

DRUGS (3)
  1. BRILIQUE [Suspect]
     Indication: ACUTE CORONARY SYNDROME
     Route: 048
     Dates: start: 20120320, end: 20120320
  2. ACTIVASE [Concomitant]
     Indication: THROMBOLYSIS
  3. HEPARIN [Concomitant]
     Indication: THROMBOLYSIS

REACTIONS (1)
  - CEREBRAL HAEMORRHAGE [None]
